FAERS Safety Report 11493559 (Version 1)
Quarter: 2015Q3

REPORT INFORMATION
  Report Type: Spontaneous
  Country: US (occurrence: US)
  Receive Date: 20150911
  Receipt Date: 20150911
  Transmission Date: 20151125
  Serious: No
  Sender: FDA-Public Use
  Company Number: US-ASTRAZENECA-2015SE74494

PATIENT
  Age: 23668 Day
  Sex: Female
  Weight: 69.9 kg

DRUGS (14)
  1. LOSARTAN/HCZ [Concomitant]
     Dosage: 100/12.5MG EVERY DAY
     Route: 048
  2. BYDUREON [Suspect]
     Active Substance: EXENATIDE
     Indication: TYPE 2 DIABETES MELLITUS
     Route: 058
     Dates: start: 20150714, end: 20150731
  3. OMEPRAZOLE. [Suspect]
     Active Substance: OMEPRAZOLE
     Route: 048
  4. ATENOLOL. [Suspect]
     Active Substance: ATENOLOL
     Route: 048
  5. OMEPRAZOLE. [Suspect]
     Active Substance: OMEPRAZOLE
     Route: 048
  6. AMLODIPINE [Concomitant]
     Active Substance: AMLODIPINE BESYLATE
     Route: 048
  7. ATORVASTATIN [Concomitant]
     Active Substance: ATORVASTATIN
  8. FORXIGA [Concomitant]
     Active Substance: DAPAGLIFLOZIN
     Route: 048
  9. GLIMEPIRIDE. [Concomitant]
     Active Substance: GLIMEPIRIDE
     Route: 048
  10. GLUCOPHAGE [Concomitant]
     Active Substance: METFORMIN HYDROCHLORIDE
     Route: 048
  11. ILEVRO [Concomitant]
     Active Substance: NEPAFENAC
     Route: 047
  12. TANZEUM [Concomitant]
     Active Substance: ALBIGLUTIDE
     Dosage: 30MG/0.5ML
     Route: 058
  13. ALLOPURINOL. [Concomitant]
     Active Substance: ALLOPURINOL
  14. ZOSTAVAX [Concomitant]
     Active Substance: VARICELLA-ZOSTER VIRUS STRAIN OKA/MERCK LIVE ANTIGEN
     Dosage: 194000 UNIT/0.65ML
     Route: 058

REACTIONS (2)
  - Injection site pruritus [Recovering/Resolving]
  - Injection site rash [Recovering/Resolving]

NARRATIVE: CASE EVENT DATE: 20150722
